FAERS Safety Report 25864240 (Version 1)
Quarter: 2025Q3

REPORT INFORMATION
  Report Type: Spontaneous
  Country: US (occurrence: None)
  Receive Date: 20250930
  Receipt Date: 20250930
  Transmission Date: 20251021
  Serious: Yes (Other)
  Sender: ALKERMES
  Company Number: US-ALKERMES INC.-ALK-2025-002545

PATIENT
  Age: 37 Year
  Sex: Female

DRUGS (3)
  1. VIVITROL [Suspect]
     Active Substance: NALTREXONE
     Indication: Dependence
     Dates: start: 20250821, end: 20250821
  2. VIVITROL [Suspect]
     Active Substance: NALTREXONE
  3. UNSPECIFIED INGREDIENT [Concomitant]
     Active Substance: UNSPECIFIED INGREDIENT
     Indication: Schizophrenia
     Route: 065

REACTIONS (2)
  - Pulmonary embolism [Unknown]
  - Alcohol use [Unknown]

NARRATIVE: CASE EVENT DATE: 20250904
